FAERS Safety Report 25096627 (Version 2)
Quarter: 2025Q1

REPORT INFORMATION
  Report Type: Spontaneous
  Country: IT (occurrence: IT)
  Receive Date: 20250319
  Receipt Date: 20250327
  Transmission Date: 20250409
  Serious: Yes (Other)
  Sender: MYLAN
  Company Number: IT-TEVA-VS-3271463

PATIENT
  Age: 59 Year
  Sex: Female

DRUGS (8)
  1. METHOTREXATE [Suspect]
     Active Substance: METHOTREXATE
     Indication: Product used for unknown indication
  2. ARSENIC [Suspect]
     Active Substance: ARSENIC
     Indication: Acute promyelocytic leukaemia
     Dosage: 6.6 MILLIGRAM, QD (EQUIVALENT TO 6.6MG/DAY, CUMULATIVE ATO DOSE AT SYMPTOMS ONSET)
  3. ARSENIC [Suspect]
     Active Substance: ARSENIC
  4. ARSENIC [Suspect]
     Active Substance: ARSENIC
  5. MERCAPTOPURINE [Suspect]
     Active Substance: MERCAPTOPURINE
     Indication: Product used for unknown indication
  6. TRETINOIN [Concomitant]
     Active Substance: TRETINOIN
     Indication: Acute promyelocytic leukaemia
  7. TRETINOIN [Concomitant]
     Active Substance: TRETINOIN
  8. TRETINOIN [Concomitant]
     Active Substance: TRETINOIN

REACTIONS (5)
  - Neurotoxicity [Recovered/Resolved]
  - Intestinal pseudo-obstruction [Recovered/Resolved]
  - Vitamin B complex deficiency [Unknown]
  - Vomiting [Recovered/Resolved]
  - Peripheral sensory neuropathy [Recovered/Resolved]
